FAERS Safety Report 24538206 (Version 1)
Quarter: 2024Q4

REPORT INFORMATION
  Report Type: Spontaneous
  Country: US (occurrence: US)
  Receive Date: 20241023
  Receipt Date: 20241023
  Transmission Date: 20250115
  Serious: Yes (Hospitalization)
  Sender: RISING PHARMACEUTICALS
  Company Number: US-RISINGPHARMA-US-2024RISLIT00373

PATIENT
  Age: 66 Year
  Sex: Female

DRUGS (60)
  1. SUFENTANIL CITRATE [Suspect]
     Active Substance: SUFENTANIL CITRATE
     Indication: Spinal pain
     Route: 037
  2. SUFENTANIL CITRATE [Suspect]
     Active Substance: SUFENTANIL CITRATE
     Route: 037
  3. SUFENTANIL CITRATE [Suspect]
     Active Substance: SUFENTANIL CITRATE
     Dosage: MCG
     Route: 037
  4. SUFENTANIL CITRATE [Suspect]
     Active Substance: SUFENTANIL CITRATE
     Route: 037
  5. SUFENTANIL CITRATE [Suspect]
     Active Substance: SUFENTANIL CITRATE
     Dosage: MCG
     Route: 037
  6. SUFENTANIL CITRATE [Suspect]
     Active Substance: SUFENTANIL CITRATE
     Route: 037
     Dates: start: 20080908
  7. SUFENTANIL CITRATE [Suspect]
     Active Substance: SUFENTANIL CITRATE
     Route: 037
     Dates: start: 20100923
  8. SUFENTANIL CITRATE [Suspect]
     Active Substance: SUFENTANIL CITRATE
     Route: 037
     Dates: start: 20120813
  9. SUFENTANIL CITRATE [Suspect]
     Active Substance: SUFENTANIL CITRATE
     Route: 037
     Dates: start: 20150708
  10. SUFENTANIL CITRATE [Suspect]
     Active Substance: SUFENTANIL CITRATE
     Route: 037
     Dates: start: 20180628
  11. SUFENTANIL CITRATE [Suspect]
     Active Substance: SUFENTANIL CITRATE
     Route: 037
     Dates: start: 20190619
  12. SUFENTANIL CITRATE [Suspect]
     Active Substance: SUFENTANIL CITRATE
     Route: 037
     Dates: start: 20190820
  13. SUFENTANIL CITRATE [Suspect]
     Active Substance: SUFENTANIL CITRATE
     Route: 037
     Dates: start: 20200125
  14. FENTANYL CITRATE [Suspect]
     Active Substance: FENTANYL CITRATE
     Indication: Product used for unknown indication
     Route: 065
  15. FENTANYL CITRATE [Suspect]
     Active Substance: FENTANYL CITRATE
     Route: 065
  16. FENTANYL CITRATE [Suspect]
     Active Substance: FENTANYL CITRATE
     Dosage: MCG
     Route: 065
  17. FENTANYL CITRATE [Suspect]
     Active Substance: FENTANYL CITRATE
     Dosage: MCG
     Route: 065
  18. FENTANYL CITRATE [Suspect]
     Active Substance: FENTANYL CITRATE
     Route: 065
     Dates: start: 20070222
  19. FENTANYL CITRATE [Suspect]
     Active Substance: FENTANYL CITRATE
     Route: 065
     Dates: start: 20080219
  20. FENTANYL CITRATE [Suspect]
     Active Substance: FENTANYL CITRATE
     Route: 065
     Dates: start: 20080714
  21. BUPIVACAINE [Concomitant]
     Active Substance: BUPIVACAINE
     Route: 065
  22. BUPIVACAINE [Concomitant]
     Active Substance: BUPIVACAINE
     Route: 065
  23. BUPIVACAINE [Concomitant]
     Active Substance: BUPIVACAINE
     Route: 065
  24. BUPIVACAINE [Concomitant]
     Active Substance: BUPIVACAINE
     Route: 065
  25. BUPIVACAINE [Concomitant]
     Active Substance: BUPIVACAINE
     Route: 065
  26. BUPIVACAINE [Concomitant]
     Active Substance: BUPIVACAINE
     Route: 065
  27. BUPIVACAINE [Concomitant]
     Active Substance: BUPIVACAINE
     Route: 065
  28. BUPIVACAINE [Concomitant]
     Active Substance: BUPIVACAINE
     Route: 065
  29. BUPIVACAINE [Concomitant]
     Active Substance: BUPIVACAINE
     Route: 065
     Dates: start: 20070222
  30. BUPIVACAINE [Concomitant]
     Active Substance: BUPIVACAINE
     Route: 065
     Dates: start: 20080219
  31. BUPIVACAINE [Concomitant]
     Active Substance: BUPIVACAINE
     Route: 065
     Dates: start: 20080714
  32. BUPIVACAINE [Concomitant]
     Active Substance: BUPIVACAINE
     Route: 065
     Dates: start: 20080908
  33. BUPIVACAINE [Concomitant]
     Active Substance: BUPIVACAINE
     Route: 065
     Dates: start: 20100923
  34. BUPIVACAINE [Concomitant]
     Active Substance: BUPIVACAINE
     Route: 065
     Dates: start: 20120813
  35. BUPIVACAINE [Concomitant]
     Active Substance: BUPIVACAINE
     Route: 065
     Dates: start: 20150708
  36. BUPIVACAINE [Concomitant]
     Active Substance: BUPIVACAINE
     Route: 065
     Dates: start: 20180628
  37. BUPIVACAINE [Concomitant]
     Active Substance: BUPIVACAINE
     Route: 065
     Dates: start: 20190619
  38. BUPIVACAINE [Concomitant]
     Active Substance: BUPIVACAINE
     Route: 065
     Dates: start: 20190820
  39. BUPIVACAINE [Concomitant]
     Active Substance: BUPIVACAINE
     Route: 065
     Dates: start: 20200125
  40. CLONIDINE [Concomitant]
     Active Substance: CLONIDINE
     Route: 065
  41. CLONIDINE [Concomitant]
     Active Substance: CLONIDINE
     Dosage: MCG
     Route: 065
  42. CLONIDINE [Concomitant]
     Active Substance: CLONIDINE
     Route: 065
  43. CLONIDINE [Concomitant]
     Active Substance: CLONIDINE
     Dosage: MCG
     Route: 065
  44. CLONIDINE [Concomitant]
     Active Substance: CLONIDINE
     Route: 065
  45. CLONIDINE [Concomitant]
     Active Substance: CLONIDINE
     Dosage: MCG
     Route: 065
  46. CLONIDINE [Concomitant]
     Active Substance: CLONIDINE
     Route: 065
  47. CLONIDINE [Concomitant]
     Active Substance: CLONIDINE
     Route: 065
     Dates: start: 20070222
  48. CLONIDINE [Concomitant]
     Active Substance: CLONIDINE
     Route: 065
     Dates: start: 20080219
  49. CLONIDINE [Concomitant]
     Active Substance: CLONIDINE
     Route: 065
     Dates: start: 20080714
  50. CLONIDINE [Concomitant]
     Active Substance: CLONIDINE
     Route: 065
     Dates: start: 20080908
  51. CLONIDINE [Concomitant]
     Active Substance: CLONIDINE
     Route: 065
     Dates: start: 20100923
  52. CLONIDINE [Concomitant]
     Active Substance: CLONIDINE
     Route: 065
     Dates: start: 20120813
  53. CLONIDINE [Concomitant]
     Active Substance: CLONIDINE
     Route: 065
     Dates: start: 20150708
  54. CLONIDINE [Concomitant]
     Active Substance: CLONIDINE
     Route: 065
     Dates: start: 20180628
  55. CLONIDINE [Concomitant]
     Active Substance: CLONIDINE
     Route: 065
     Dates: start: 20190619
  56. CLONIDINE [Concomitant]
     Active Substance: CLONIDINE
     Route: 065
     Dates: start: 20190820
  57. CLONIDINE [Concomitant]
     Active Substance: CLONIDINE
     Route: 065
     Dates: start: 20200125
  58. MORPHINE [Concomitant]
     Active Substance: MORPHINE
     Indication: Product used for unknown indication
     Route: 065
  59. TOPIRAMATE [Concomitant]
     Active Substance: TOPIRAMATE
     Indication: Product used for unknown indication
     Route: 065
  60. DEXAMETHASONE [Concomitant]
     Active Substance: DEXAMETHASONE
     Indication: Product used for unknown indication
     Route: 065

REACTIONS (3)
  - Catheter site granuloma [Unknown]
  - Product use in unapproved indication [Unknown]
  - Drug ineffective [Unknown]
